FAERS Safety Report 24263762 (Version 3)
Quarter: 2024Q3

REPORT INFORMATION
  Report Type: Spontaneous
  Country: US (occurrence: US)
  Receive Date: 20240829
  Receipt Date: 20240913
  Transmission Date: 20241017
  Serious: Yes (Hospitalization, Other)
  Sender: PFIZER
  Company Number: US-PFIZER INC-PV202400111539

PATIENT
  Age: 75 Year
  Sex: Female

DRUGS (1)
  1. TUKYSA [Suspect]
     Active Substance: TUCATINIB
     Dosage: 2 TABLETS IN THE MORNING, 2 TABLETS IN THE EVENING
     Dates: end: 20240823

REACTIONS (5)
  - Blood creatinine increased [Unknown]
  - Hydronephrosis [Unknown]
  - Renal mass [Unknown]
  - Urinary tract obstruction [Unknown]
  - Neoplasm progression [Unknown]
